FAERS Safety Report 15058534 (Version 1)
Quarter: 2018Q2

REPORT INFORMATION
  Report Type: Spontaneous
  Country: IT (occurrence: IT)
  Receive Date: 20180625
  Receipt Date: 20180625
  Transmission Date: 20180711
  Serious: Yes (Death)
  Sender: FDA-Public Use
  Company Number: PHHY2017IT203929

PATIENT
  Age: 58 Year
  Sex: Male

DRUGS (4)
  1. DISSENTEN [Concomitant]
     Active Substance: LOPERAMIDE HYDROCHLORIDE
     Indication: PRODUCT USED FOR UNKNOWN INDICATION
     Dosage: 4 DF, UNK
     Route: 048
  2. DOCETAXEL. [Suspect]
     Active Substance: DOCETAXEL
     Dosage: 149 MG, UNK
     Route: 042
     Dates: start: 20170526
  3. VARGATEF [Suspect]
     Active Substance: NINTEDANIB
     Indication: LUNG ADENOCARCINOMA
     Dosage: 400 MG, QD
     Route: 048
     Dates: start: 20170529, end: 20170601
  4. DOCETAXEL. [Suspect]
     Active Substance: DOCETAXEL
     Indication: LUNG ADENOCARCINOMA
     Dosage: 75 MG, UNK
     Route: 065

REACTIONS (5)
  - Neutropenia [Fatal]
  - Diarrhoea [Fatal]
  - Urine output decreased [Fatal]
  - Death [Fatal]
  - Pain [Fatal]

NARRATIVE: CASE EVENT DATE: 20170601
